FAERS Safety Report 11229586 (Version 2)
Quarter: 2015Q3

REPORT INFORMATION
  Report Type: Spontaneous
  Country: DK (occurrence: DK)
  Receive Date: 20150630
  Receipt Date: 20150821
  Transmission Date: 20151125
  Serious: Yes (Death, Life-Threatening, Hospitalization)
  Sender: FDA-Public Use
  Company Number: DK-BAXTER-2015BAX003936

PATIENT
  Age: 80 Year
  Sex: Male

DRUGS (47)
  1. ONCOVIN [Suspect]
     Active Substance: VINCRISTINE SULFATE
     Dosage: EIGHT COURSES R-CHOP THERAPY
     Route: 042
     Dates: start: 20140214
  2. PREDNISOLON [Suspect]
     Active Substance: PREDNISOLONE
     Dosage: DAY1 TO 5 WITH EIGHT COURSES R-CHOP THERAPY
     Route: 048
     Dates: start: 20140124
  3. PREDNISOLON [Suspect]
     Active Substance: PREDNISOLONE
     Dosage: DAY1 TO 5 WITH EIGHT COURSES R-CHOP THERAPY
     Route: 048
     Dates: start: 20140214
  4. PREDNISOLON [Suspect]
     Active Substance: PREDNISOLONE
     Dosage: DAY1 TO 5 WITH EIGHT COURSES R-CHOP THERAPY
     Route: 048
     Dates: start: 20140307
  5. MABTHERA [Suspect]
     Active Substance: RITUXIMAB
     Dosage: EIGHT COURSES R-CHOP THERAPY
     Route: 042
     Dates: start: 20140307
  6. IMOCLONE [Concomitant]
     Active Substance: ZOPICLONE
     Indication: INSOMNIA
     Route: 048
     Dates: start: 20131219, end: 20141222
  7. DIURAL [Concomitant]
     Active Substance: FUROSEMIDE
     Indication: DIURETIC THERAPY
     Route: 048
     Dates: start: 20131220
  8. SENDOXAN [Suspect]
     Active Substance: CYCLOPHOSPHAMIDE
     Indication: DIFFUSE LARGE B-CELL LYMPHOMA
     Dosage: EIGHT COURSES R-CHOP THERAPY
     Route: 042
     Dates: start: 20131213
  9. SENDOXAN [Suspect]
     Active Substance: CYCLOPHOSPHAMIDE
     Dosage: EIGHT COURSES R-CHOP THERAPY
     Route: 042
     Dates: start: 20140328
  10. ADRIAMYCIN [Suspect]
     Active Substance: DOXORUBICIN HYDROCHLORIDE
     Dosage: COURSE
     Route: 042
     Dates: start: 20140328, end: 20140328
  11. ONCOVIN [Suspect]
     Active Substance: VINCRISTINE SULFATE
     Dosage: EIGHT COURSES R-CHOP THERAPY
     Route: 042
     Dates: start: 20140513, end: 20140513
  12. MABTHERA [Suspect]
     Active Substance: RITUXIMAB
     Indication: DIFFUSE LARGE B-CELL LYMPHOMA
     Dosage: EIGHT COURSES R-CHOP THERAPY
     Route: 042
     Dates: start: 20131213
  13. KALEORID [Concomitant]
     Active Substance: POTASSIUM CHLORIDE
     Indication: MINERAL SUPPLEMENTATION
     Route: 048
     Dates: start: 20131220, end: 20141212
  14. ADRIAMYCIN [Suspect]
     Active Substance: DOXORUBICIN HYDROCHLORIDE
     Indication: DIFFUSE LARGE B-CELL LYMPHOMA
     Dosage: COURSE
     Route: 042
     Dates: start: 20131213
  15. ONCOVIN [Suspect]
     Active Substance: VINCRISTINE SULFATE
     Dosage: EIGHT COURSES R-CHOP THERAPY
     Route: 042
     Dates: start: 20140307
  16. MABTHERA [Suspect]
     Active Substance: RITUXIMAB
     Dosage: EIGHT COURSES R-CHOP THERAPY
     Route: 042
     Dates: start: 20140513, end: 20140513
  17. CAELYX [Suspect]
     Active Substance: DOXORUBICIN HYDROCHLORIDE
     Indication: DIFFUSE LARGE B-CELL LYMPHOMA
     Dosage: COURSE
     Route: 042
     Dates: start: 20140422
  18. UNIKALK FORTE [Concomitant]
     Indication: PRODUCT USED FOR UNKNOWN INDICATION
     Route: 065
  19. SENDOXAN [Suspect]
     Active Substance: CYCLOPHOSPHAMIDE
     Dosage: EIGHT COURSES R-CHOP THERAPY
     Route: 042
     Dates: start: 20140124
  20. SENDOXAN [Suspect]
     Active Substance: CYCLOPHOSPHAMIDE
     Dosage: EIGHT COURSES R-CHOP THERAPY
     Route: 042
     Dates: start: 20140422
  21. PREDNISOLON [Suspect]
     Active Substance: PREDNISOLONE
     Dosage: DAY1 TO 5 WITH EIGHT COURSES R-CHOP THERAPY
     Route: 048
     Dates: start: 20140422
  22. MABTHERA [Suspect]
     Active Substance: RITUXIMAB
     Dosage: EIGHT COURSES R-CHOP THERAPY
     Route: 042
     Dates: start: 20140103
  23. MABTHERA [Suspect]
     Active Substance: RITUXIMAB
     Dosage: EIGHT COURSES R-CHOP THERAPY
     Route: 042
     Dates: start: 20140328
  24. MABTHERA [Suspect]
     Active Substance: RITUXIMAB
     Dosage: EIGHT COURSES R-CHOP THERAPY
     Route: 042
     Dates: start: 20140422
  25. CLOPIDOGREL [Concomitant]
     Active Substance: CLOPIDOGREL BISULFATE
     Indication: THROMBOSIS PROPHYLAXIS
     Route: 065
     Dates: start: 20140918, end: 20141222
  26. ONCOVIN [Suspect]
     Active Substance: VINCRISTINE SULFATE
     Dosage: EIGHT COURSES R-CHOP THERAPY
     Route: 042
     Dates: start: 20140103
  27. ONCOVIN [Suspect]
     Active Substance: VINCRISTINE SULFATE
     Dosage: EIGHT COURSES R-CHOP THERAPY
     Route: 042
     Dates: start: 20140422
  28. AMLODIPIN [Concomitant]
     Active Substance: AMLODIPINE BESYLATE
     Indication: HYPERTENSION
     Route: 048
     Dates: start: 20121113, end: 20141130
  29. SENDOXAN [Suspect]
     Active Substance: CYCLOPHOSPHAMIDE
     Dosage: EIGHT COURSES R-CHOP THERAPY
     Route: 042
     Dates: start: 20140513, end: 20140513
  30. ADRIAMYCIN [Suspect]
     Active Substance: DOXORUBICIN HYDROCHLORIDE
     Dosage: COURSE
     Route: 042
     Dates: start: 20140103
  31. ADRIAMYCIN [Suspect]
     Active Substance: DOXORUBICIN HYDROCHLORIDE
     Dosage: COURSE
     Route: 042
     Dates: start: 20140124
  32. ADRIAMYCIN [Suspect]
     Active Substance: DOXORUBICIN HYDROCHLORIDE
     Dosage: COURSE
     Route: 042
     Dates: start: 20140307
  33. PREDNISOLON [Suspect]
     Active Substance: PREDNISOLONE
     Dosage: DAY1 TO 5 WITH EIGHT COURSES R-CHOP THERAPY
     Route: 048
     Dates: start: 20140328
  34. PREDNISOLON [Suspect]
     Active Substance: PREDNISOLONE
     Dosage: DAY1 TO 5 WITH EIGHT COURSES R-CHOP THERAPY
     Route: 048
     Dates: start: 20140513, end: 20140513
  35. MABTHERA [Suspect]
     Active Substance: RITUXIMAB
     Dosage: EIGHT COURSES R-CHOP THERAPY
     Route: 042
     Dates: start: 20140124
  36. MABTHERA [Suspect]
     Active Substance: RITUXIMAB
     Dosage: EIGHT COURSES R-CHOP THERAPY
     Route: 042
     Dates: start: 20140214
  37. CAELYX [Suspect]
     Active Substance: DOXORUBICIN HYDROCHLORIDE
     Dosage: COURSE
     Route: 042
     Dates: start: 20140513, end: 20140513
  38. SENDOXAN [Suspect]
     Active Substance: CYCLOPHOSPHAMIDE
     Dosage: EIGHT COURSES R-CHOP THERAPY
     Route: 042
     Dates: start: 20140103
  39. SENDOXAN [Suspect]
     Active Substance: CYCLOPHOSPHAMIDE
     Dosage: EIGHT COURSES R-CHOP THERAPY
     Route: 042
     Dates: start: 20140214
  40. SENDOXAN [Suspect]
     Active Substance: CYCLOPHOSPHAMIDE
     Dosage: EIGHT COURSES R-CHOP THERAPY
     Route: 042
     Dates: start: 20140307
  41. ONCOVIN [Suspect]
     Active Substance: VINCRISTINE SULFATE
     Dosage: EIGHT COURSES R-CHOP THERAPY
     Route: 042
     Dates: start: 20140124
  42. ONCOVIN [Suspect]
     Active Substance: VINCRISTINE SULFATE
     Dosage: EIGHT COURSES R-CHOP THERAPY
     Route: 042
     Dates: start: 20140328
  43. ADRIAMYCIN [Suspect]
     Active Substance: DOXORUBICIN HYDROCHLORIDE
     Dosage: COURSE
     Route: 042
     Dates: start: 20140214
  44. PREDNISOLON [Suspect]
     Active Substance: PREDNISOLONE
     Indication: DIFFUSE LARGE B-CELL LYMPHOMA
     Dosage: DAY1 TO 5 WITH EIGHT COURSES R-CHOP THERAPY
     Route: 048
     Dates: start: 20131213
  45. PREDNISOLON [Suspect]
     Active Substance: PREDNISOLONE
     Dosage: DAY1 TO 5 WITH EIGHT COURSES R-CHOP THERAPY
     Route: 048
     Dates: start: 20140103
  46. MOVICOL [Concomitant]
     Active Substance: POLYETHYLENE GLYCOL 3350\POTASSIUM CHLORIDE\SODIUM BICARBONATE\SODIUM CHLORIDE
     Indication: CONSTIPATION
     Route: 048
     Dates: start: 20140323
  47. ONCOVIN [Suspect]
     Active Substance: VINCRISTINE SULFATE
     Indication: DIFFUSE LARGE B-CELL LYMPHOMA
     Dosage: EIGHT COURSES R-CHOP THERAPY
     Route: 042
     Dates: start: 20131213

REACTIONS (3)
  - Pulmonary fibrosis [Fatal]
  - Ejection fraction decreased [Unknown]
  - Herpes zoster [Unknown]

NARRATIVE: CASE EVENT DATE: 20141101
